FAERS Safety Report 19830146 (Version 1)
Quarter: 2021Q3

REPORT INFORMATION
  Report Type: Spontaneous
  Country: US (occurrence: US)
  Receive Date: 20210914
  Receipt Date: 20210914
  Transmission Date: 20211014
  Serious: Yes (Hospitalization)
  Sender: FDA-Public Use
  Company Number: None

PATIENT
  Age: 69 Year
  Sex: Male
  Weight: 74.9 kg

DRUGS (3)
  1. BENDAMUSTINE HYDROCHLORIDE. [Suspect]
     Active Substance: BENDAMUSTINE HYDROCHLORIDE
     Dates: start: 20210907, end: 20210908
  2. ACALABRUTINIB. [Suspect]
     Active Substance: ACALABRUTINIB
     Dates: start: 20210907, end: 20210911
  3. RITUXIMAB (MOAB C2B8 ANTI CD20, CHIMERIC) [Suspect]
     Active Substance: RITUXIMAB
     Dates: start: 20210907, end: 20210907

REACTIONS (4)
  - Haemodialysis [None]
  - Blood urea increased [None]
  - Blood potassium increased [None]
  - Blood creatinine increased [None]

NARRATIVE: CASE EVENT DATE: 20210912
